FAERS Safety Report 9527996 (Version 1)
Quarter: 2013Q1

REPORT INFORMATION
  Report Type: Spontaneous
  Country: US (occurrence: None)
  Receive Date: 20130314
  Receipt Date: 20130314
  Transmission Date: 20140127
  Serious: Yes (Other)
  Sender: FDA-Public Use
  Company Number: 1211USA008845

PATIENT
  Age: 63 Year
  Sex: Male
  Weight: 65.8 kg

DRUGS (7)
  1. PEGINTRON [Suspect]
  2. VICTRELIS (BOCEPREVIR) CAPSULE, 200MG [Suspect]
  3. LISINOPRIL [Concomitant]
  4. OMEPRAZOLE [Concomitant]
  5. METOPROLOL (METOPROLOL) TABLET 100MG [Concomitant]
  6. WARFARIN (WARFARIN) TABLET 10MG [Concomitant]
  7. RIBAVIRIN (RIBAVIRIN) CAPSULE 200MG [Suspect]

REACTIONS (4)
  - Dysgeusia [None]
  - Rash [None]
  - Dyspnoea [None]
  - Asthenia [None]
